FAERS Safety Report 8278628-0 (Version None)
Quarter: 2012Q2

REPORT INFORMATION
  Report Type: 
  Country: None (occurrence: None)
  Receive Date: 20120412
  Receipt Date: 20111004
  Transmission Date: 20120825
  Serious: No
  Sender: FDA-Public Use
  Company Number: US-ASTRAZENECA-2011SE40635

PATIENT
  Age: 66 Year
  Sex: Female

DRUGS (3)
  1. PRILOSEC OTC [Suspect]
     Route: 048
  2. NEXIUM [Suspect]
     Route: 048
  3. TOPROL-XL [Concomitant]

REACTIONS (5)
  - DRUG INEFFECTIVE [None]
  - HYPOPHAGIA [None]
  - MALAISE [None]
  - WEIGHT DECREASED [None]
  - DRUG DOSE OMISSION [None]
